FAERS Safety Report 5295895-6 (Version None)
Quarter: 2007Q2

REPORT INFORMATION
  Report Type: 
  Country: None (occurrence: None)
  Receive Date: 20070413
  Receipt Date: 20070402
  Transmission Date: 20071010
  Serious: Yes (Hospitalization)
  Sender: FDA-Public Use
  Company Number: PHBS2007IT05840

PATIENT
  Age: 76 Year
  Sex: Male

DRUGS (3)
  1. ZOMETA [Suspect]
     Indication: OSTEOPOROSIS
     Dosage: 4 MG, QMO
     Route: 042
     Dates: start: 20041201, end: 20050630
  2. CORTISONE ACETATE [Concomitant]
  3. INSULIN [Concomitant]

REACTIONS (4)
  - BONE DISORDER [None]
  - BONE TRIMMING [None]
  - OSTEONECROSIS [None]
  - SWELLING FACE [None]
